FAERS Safety Report 13789504 (Version 1)
Quarter: 2017Q3

REPORT INFORMATION
  Report Type: Spontaneous
  Country: FR (occurrence: FR)
  Receive Date: 20170725
  Receipt Date: 20170725
  Transmission Date: 20171127
  Serious: Yes (Life-Threatening, Other)
  Sender: FDA-Public Use
  Company Number: FR-AMGEN-FRASP2017109296

PATIENT
  Age: 75 Year
  Sex: Male

DRUGS (6)
  1. NEUPOGEN [Suspect]
     Active Substance: FILGRASTIM
     Indication: PRODUCT USED FOR UNKNOWN INDICATION
     Dosage: UNK
     Route: 065
     Dates: start: 20160509
  2. VIDAZA [Concomitant]
     Active Substance: AZACITIDINE
     Dosage: UNK
     Dates: start: 20160509
  3. NEULASTA [Suspect]
     Active Substance: PEGFILGRASTIM
     Indication: NEUTROPENIA
     Dosage: UNK UNK, ONE TIME DOSE
     Route: 058
     Dates: start: 20170509, end: 20170509
  4. CORDARONE [Concomitant]
     Active Substance: AMIODARONE HYDROCHLORIDE
     Dosage: 200 MG, UNK
  5. LOXEN [Concomitant]
     Active Substance: NICARDIPINE HYDROCHLORIDE
     Dosage: 100 MG, QD
  6. COUMADINE [Concomitant]
     Active Substance: WARFARIN SODIUM
     Dosage: UNK
     Dates: end: 20170520

REACTIONS (4)
  - Neutrophil count increased [Recovered/Resolved]
  - Renal failure [Recovered/Resolved]
  - Acute respiratory distress syndrome [Recovered/Resolved]
  - Hyperleukocytosis [Recovered/Resolved]

NARRATIVE: CASE EVENT DATE: 20170516
